FAERS Safety Report 16063508 (Version 1)
Quarter: 2019Q1

REPORT INFORMATION
  Report Type: Spontaneous
  Country: US (occurrence: US)
  Receive Date: 20190312
  Receipt Date: 20190312
  Transmission Date: 20190418
  Serious: No
  Sender: FDA-Public Use
  Company Number: US-VIFOR (INTERNATIONAL) INC.-VIT-2019-02023

PATIENT
  Sex: Male

DRUGS (5)
  1. HUMALOG [Concomitant]
     Active Substance: INSULIN LISPRO
  2. LANTUS [Concomitant]
     Active Substance: INSULIN GLARGINE
  3. VELTASSA [Suspect]
     Active Substance: PATIROMER
  4. HUMULIN N [Concomitant]
     Active Substance: INSULIN HUMAN
  5. VELTASSA [Suspect]
     Active Substance: PATIROMER
     Indication: HYPERKALAEMIA
     Dates: start: 20181025

REACTIONS (5)
  - Inappropriate schedule of product administration [Unknown]
  - Blood glucose decreased [Not Recovered/Not Resolved]
  - Product quality issue [Unknown]
  - Product availability issue [Unknown]
  - Blood potassium increased [Not Recovered/Not Resolved]
